FAERS Safety Report 5960972-0 (Version None)
Quarter: 2008Q4

REPORT INFORMATION
  Report Type: 
  Country: None (occurrence: None)
  Receive Date: 20081119
  Receipt Date: 20081109
  Transmission Date: 20090506
  Serious: Yes (Death)
  Sender: FDA-Public Use
  Company Number: 2008-03482

PATIENT
  Age: 51 Year
  Sex: Male

DRUGS (1)
  1. VELCADE [Suspect]
     Indication: MULTIPLE MYELOMA
     Dosage: 1.3 MG/M2

REACTIONS (7)
  - CEREBROVASCULAR ACCIDENT [None]
  - DISEASE PROGRESSION [None]
  - HAEMORRHAGE INTRACRANIAL [None]
  - MULTIPLE MYELOMA [None]
  - PLATELET COUNT INCREASED [None]
  - PNEUMONIA [None]
  - THORACIC VERTEBRAL FRACTURE [None]
